FAERS Safety Report 7970681-4 (Version None)
Quarter: 2011Q4

REPORT INFORMATION
  Report Type: 
  Country: None (occurrence: None)
  Receive Date: 20111212
  Receipt Date: 20111203
  Transmission Date: 20120403
  Serious: Yes (Other)
  Sender: FDA-Public Use
  Company Number: PHHY2011JP94196

PATIENT
  Sex: Female

DRUGS (1)
  1. OXALIPLATIN [Suspect]
     Indication: COLORECTAL CANCER
     Dosage: 929.6 MG/M2, UNK

REACTIONS (6)
  - VOMITING [None]
  - CARDIAC ARREST [None]
  - HYPOTENSION [None]
  - HYPERSENSITIVITY [None]
  - ALTERED STATE OF CONSCIOUSNESS [None]
  - ECZEMA [None]
